FAERS Safety Report 23922903 (Version 2)
Quarter: 2024Q2

REPORT INFORMATION
  Report Type: Report from Study
  Country: US (occurrence: US)
  Receive Date: 20240531
  Receipt Date: 20240619
  Transmission Date: 20240716
  Serious: No
  Sender: FDA-Public Use
  Company Number: US-BRISTOL-MYERS SQUIBB COMPANY-2024-087261

PATIENT
  Age: 23 Year
  Sex: Female
  Weight: 143.34 kg

DRUGS (2)
  1. SOTYKTU [Suspect]
     Active Substance: DEUCRAVACITINIB
     Indication: Psoriasis
     Route: 048
     Dates: start: 20240516
  2. FLUOXETINE [Concomitant]
     Active Substance: FLUOXETINE HYDROCHLORIDE
     Indication: Product used for unknown indication

REACTIONS (5)
  - Nausea [Unknown]
  - Vomiting [Unknown]
  - Rash vesicular [Unknown]
  - Diarrhoea [Unknown]
  - Abdominal pain upper [Unknown]

NARRATIVE: CASE EVENT DATE: 20240501
